FAERS Safety Report 18836790 (Version 1)
Quarter: 2021Q1

REPORT INFORMATION
  Report Type: Spontaneous
  Country: US (occurrence: US)
  Receive Date: 20210203
  Receipt Date: 20210203
  Transmission Date: 20210419
  Serious: No
  Sender: FDA-Public Use
  Company Number: US-ALLERGAN-2024535US

PATIENT
  Sex: Female

DRUGS (2)
  1. ADVIL [Concomitant]
     Active Substance: IBUPROFEN
     Dosage: UNK, PRN
  2. BOTOX COSMETIC [Suspect]
     Active Substance: ONABOTULINUMTOXINA
     Indication: HYPERHIDROSIS
     Dosage: 100 UNITS, SINGLE
     Dates: start: 20200610, end: 20200610

REACTIONS (4)
  - Drug ineffective [Unknown]
  - Product preparation error [Unknown]
  - Product complaint [Unknown]
  - Product preparation issue [Unknown]
